FAERS Safety Report 23582778 (Version 1)
Quarter: 2024Q1

REPORT INFORMATION
  Report Type: Spontaneous
  Country: DE (occurrence: DE)
  Receive Date: 20240301
  Receipt Date: 20240301
  Transmission Date: 20240410
  Serious: Yes (Hospitalization, Other)
  Sender: FDA-Public Use
  Company Number: DE-AMK-273287

PATIENT
  Age: 81 Year
  Sex: Male
  Weight: 50 kg

DRUGS (8)
  1. IBUPROFEN [Suspect]
     Active Substance: IBUPROFEN
     Indication: Spinal disorder
     Dosage: 1 DOSAGE FORM, 0.5 DAY (1-0-1 )
     Route: 048
     Dates: start: 20240108, end: 20240207
  2. IBUPROFEN [Suspect]
     Active Substance: IBUPROFEN
     Indication: Back pain
  3. CLOPIDOGREL [Concomitant]
     Active Substance: CLOPIDOGREL BISULFATE
     Indication: Transient ischaemic attack
     Dosage: 1 DOSAGE FORM, ONCE A DAY
     Route: 048
     Dates: start: 202401
  4. ATORVASTATIN [Concomitant]
     Active Substance: ATORVASTATIN
     Indication: Coronary artery disease
     Dosage: 2 DOSAGE FORM, ONCE A DAY (0-0-2)
     Route: 048
  5. ASPIRIN [Concomitant]
     Active Substance: ASPIRIN
     Indication: Transient ischaemic attack
     Dosage: 1 DOSAGE FORM, ONCE A DAY (1-0-0 )
     Route: 048
     Dates: start: 202401
  6. Delix [Concomitant]
     Indication: Product used for unknown indication
     Dosage: 1 DOSAGE FORM, 0.5 DAY (1-0-1 )
     Route: 048
     Dates: start: 2020
  7. METOPROLOL [Concomitant]
     Active Substance: METOPROLOL
     Indication: Coronary artery disease
     Dosage: 1 DOSAGE FORM, 0.5 DAY
     Route: 048
     Dates: start: 2020
  8. METOPROLOL [Concomitant]
     Active Substance: METOPROLOL
     Indication: Heart valve incompetence

REACTIONS (8)
  - Blood loss anaemia [Recovering/Resolving]
  - Gastrooesophageal reflux disease [Recovering/Resolving]
  - Haematemesis [Recovering/Resolving]
  - Haemoglobin decreased [Recovering/Resolving]
  - Melaena [Recovering/Resolving]
  - Oesophagitis ulcerative [Recovering/Resolving]
  - Upper gastrointestinal haemorrhage [Recovered/Resolved]
  - Hiatus hernia [Recovering/Resolving]

NARRATIVE: CASE EVENT DATE: 20240206
